FAERS Safety Report 21803528 (Version 2)
Quarter: 2025Q1

REPORT INFORMATION
  Report Type: Report from Study
  Country: US (occurrence: US)
  Receive Date: 20230101
  Receipt Date: 20250314
  Transmission Date: 20250409
  Serious: Yes (Other)
  Sender: ABBVIE
  Company Number: US-ABBVIE-4254319

PATIENT
  Age: 65 Year
  Sex: Male

DRUGS (2)
  1. HUMIRA [Suspect]
     Active Substance: ADALIMUMAB
     Indication: Crohn^s disease
     Route: 058
     Dates: start: 20220613
  2. HUMIRA [Suspect]
     Active Substance: ADALIMUMAB
     Route: 058
     Dates: start: 20080601

REACTIONS (1)
  - Prostate cancer [Unknown]

NARRATIVE: CASE EVENT DATE: 20210101
